FAERS Safety Report 18922445 (Version 1)
Quarter: 2021Q1

REPORT INFORMATION
  Report Type: Spontaneous
  Country: US (occurrence: US)
  Receive Date: 20210222
  Receipt Date: 20210222
  Transmission Date: 20210420
  Serious: No
  Sender: FDA-Public Use
  Company Number: US-SA-2021SA050390

PATIENT
  Sex: Female

DRUGS (3)
  1. METFORMIN HYDROCHLORIDE. [Suspect]
     Active Substance: METFORMIN HYDROCHLORIDE
  2. LANTUS [Suspect]
     Active Substance: INSULIN GLARGINE
  3. RYBELSUS [Suspect]
     Active Substance: SEMAGLUTIDE

REACTIONS (3)
  - Blood glucose decreased [Unknown]
  - Vision blurred [Unknown]
  - Headache [Unknown]
